FAERS Safety Report 7432637-X (Version None)
Quarter: 2011Q2

REPORT INFORMATION
  Report Type: 
  Country: None (occurrence: None)
  Receive Date: 20110422
  Receipt Date: 20110419
  Transmission Date: 20111010
  Serious: Yes (Death, Hospitalization, Other)
  Sender: FDA-Public Use
  Company Number: US-ABBOTT-11P-163-0720449-00

PATIENT
  Sex: Male
  Weight: 72.64 kg

DRUGS (4)
  1. CRESTOR [Concomitant]
     Indication: BLOOD CHOLESTEROL INCREASED
  2. CALCIUM [Concomitant]
     Indication: MINERAL SUPPLEMENTATION
  3. ASPIRIN [Concomitant]
     Indication: CARDIAC DISORDER
  4. HUMIRA [Suspect]
     Indication: PSORIASIS
     Dates: start: 20090915

REACTIONS (9)
  - CARDIAC ARREST [None]
  - CARDIAC VALVE DISEASE [None]
  - INTRACARDIAC THROMBUS [None]
  - ARTERIAL OCCLUSIVE DISEASE [None]
  - OSTEOMYELITIS [None]
  - SUDDEN DEATH [None]
  - CHEST PAIN [None]
  - TROPONIN INCREASED [None]
  - MYOCARDIAL INFARCTION [None]
